FAERS Safety Report 5262165-1 (Version None)
Quarter: 2007Q1

REPORT INFORMATION
  Report Type: 
  Country: None (occurrence: None)
  Receive Date: 20070311
  Receipt Date: 20070228
  Transmission Date: 20070707
  Serious: No
  Sender: FDA-Public Use
  Company Number: 2006UW07777

PATIENT
  Age: 596 Month
  Sex: Female
  Weight: 147.3 kg

DRUGS (5)
  1. SEROQUEL [Suspect]
     Indication: SCHIZOPHRENIA
     Route: 048
     Dates: start: 20040623, end: 20060501
  2. RISPERDAL [Suspect]
     Dates: start: 20050101
  3. CLOZARIL [Concomitant]
     Route: 048
     Dates: start: 20040101
  4. HALDOL [Concomitant]
     Route: 048
     Dates: start: 20060601
  5. TROZADONE [Concomitant]

REACTIONS (1)
  - DIABETES MELLITUS [None]
